FAERS Safety Report 19984691 (Version 1)
Quarter: 2021Q4

REPORT INFORMATION
  Report Type: Spontaneous
  Country: US (occurrence: US)
  Receive Date: 20211022
  Receipt Date: 20211022
  Transmission Date: 20220303
  Serious: Yes (Other)
  Sender: FDA-Public Use
  Company Number: US-GALDERMA-US2021017820

PATIENT

DRUGS (6)
  1. DOXYCYCLINE [Suspect]
     Active Substance: DOXYCYCLINE
     Indication: COVID-19
     Dosage: 1 DOSAGE FORM
     Route: 065
     Dates: start: 2020
  2. METHYLPREDNISOLONE [Concomitant]
     Active Substance: METHYLPREDNISOLONE
     Indication: COVID-19
     Dosage: UNK
     Route: 065
     Dates: start: 2020
  3. APIXABAN [Concomitant]
     Active Substance: APIXABAN
     Indication: COVID-19
     Dosage: UNK
     Route: 065
     Dates: start: 2020
  4. CEFTRIAXONE [Concomitant]
     Active Substance: CEFTRIAXONE
     Indication: COVID-19
     Dosage: UNK
     Route: 065
     Dates: start: 2020
  5. LERONLIMAB [Concomitant]
     Active Substance: LERONLIMAB
     Indication: COVID-19
     Dosage: FIRST DOSE
     Route: 065
     Dates: start: 2020, end: 2020
  6. LERONLIMAB [Concomitant]
     Active Substance: LERONLIMAB
     Dosage: SECOND DOSE
     Route: 065
     Dates: start: 2020, end: 2020

REACTIONS (2)
  - COVID-19 [Recovered/Resolved]
  - Intentional product use issue [Recovered/Resolved]

NARRATIVE: CASE EVENT DATE: 20200101
